FAERS Safety Report 17156801 (Version 1)
Quarter: 2019Q4

REPORT INFORMATION
  Report Type: Spontaneous
  Country: GB (occurrence: GB)
  Receive Date: 20191216
  Receipt Date: 20191216
  Transmission Date: 20200122
  Serious: Yes (Other)
  Sender: FDA-Public Use
  Company Number: GB-TEVA-2019-GB-1151918

PATIENT
  Age: 82 Year
  Sex: Female
  Weight: 69 kg

DRUGS (12)
  1. BISOPROLOL [Concomitant]
     Active Substance: BISOPROLOL
     Dosage: 1 DOSAGE FORMS 1 DAYS
     Dates: start: 20190626
  2. PREDNISOLONE. [Concomitant]
     Active Substance: PREDNISOLONE
     Dosage: LONG TERM , 1 DOSAGE FORMS 1 DAYS
     Dates: start: 20190626
  3. CLOPIDOGREL [Concomitant]
     Active Substance: CLOPIDOGREL BISULFATE
     Dosage: 2 DOSAGE FORMS 1 DAYS
     Dates: start: 20190715
  4. CALCIUM CARBONATE. [Concomitant]
     Active Substance: CALCIUM CARBONATE
     Dosage: 2 DOSAGE FORMS 1 DAYS
     Dates: start: 20190626
  5. CLARITHROMYCIN. [Concomitant]
     Active Substance: CLARITHROMYCIN
     Dosage: 2 DOSAGE FORMS 1 DAYS
     Dates: start: 20190903, end: 20190910
  6. ALENDRONIC ACID [Concomitant]
     Active Substance: ALENDRONIC ACID
     Dosage: ON EMPTY STOMACH , 1 DOSAGE FORMS 1 WEEKS
     Dates: start: 20190626
  7. AMOXICILLIN. [Concomitant]
     Active Substance: AMOXICILLIN
     Dosage: FOR 5 DAYS , 3 DOSAGE FORMS 1 DAYS
     Dates: start: 20190827, end: 20190901
  8. ESTRADIOL. [Concomitant]
     Active Substance: ESTRADIOL
     Dosage: 2 DOSAGE FORMS 1 WEEKS
     Dates: start: 20190715
  9. BENDROFLUMETHIAZIDE [Concomitant]
     Active Substance: BENDROFLUMETHIAZIDE
     Dosage: IN MORNING , 1 DOSAGE FORMS 1 DAYS
     Dates: start: 20190626
  10. ATORVASTATIN [Concomitant]
     Active Substance: ATORVASTATIN
     Dosage: 1 DOSAGE FORMS 1 DAYS
     Dates: start: 20190626
  11. CIPROFLOXACIN. [Suspect]
     Active Substance: CIPROFLOXACIN
     Dosage: 1000 MG 1 DAYS
     Dates: start: 20190918
  12. OMEPRAZOLE. [Concomitant]
     Active Substance: OMEPRAZOLE
     Dosage: WHILE ON PREDNISOLONE , 1 DOSAGE FORMS 1 DAYS
     Dates: start: 20190626

REACTIONS (1)
  - Tendon disorder [Recovering/Resolving]

NARRATIVE: CASE EVENT DATE: 20191021
